FAERS Safety Report 9013839 (Version 1)
Quarter: 2013Q1

REPORT INFORMATION
  Report Type: Spontaneous
  Country: US (occurrence: US)
  Receive Date: 20130115
  Receipt Date: 20130115
  Transmission Date: 20140127
  Serious: Yes (Hospitalization)
  Sender: FDA-Public Use
  Company Number: US-BAYER-2013-004387

PATIENT
  Age: 39 Year
  Sex: Female
  Weight: 64.85 kg

DRUGS (16)
  1. YAZ [Suspect]
  2. EFFEXOR [Concomitant]
     Dosage: 37.5 MG, DAILY
  3. LEVOXYL [Concomitant]
     Dosage: 150 ?G, UNK
  4. ATIVAN [Concomitant]
     Indication: ASTHMA
     Dosage: UNK UNK, AS NEEDED
  5. ALBUTEROL [Concomitant]
     Dosage: UNK UNK, AS NEEDED
  6. PREVACID [Concomitant]
     Dosage: 30 MG, DAILY
  7. CYTOMEL [Concomitant]
     Dosage: 5 ?G, DAILY
  8. PROSED/DS [Concomitant]
     Dosage: ONE TABLET FOUR TIMES DAILY AS NEEDED
  9. LUNESTA [Concomitant]
     Dosage: 3 MG, HS
  10. HYDROCODONE W/APAP [Concomitant]
     Indication: PAIN
     Dosage: 7.5-750 MG EVERY 6 TO 8 HOURS AS NEEDED
  11. ZOVIRAX [Concomitant]
     Dosage: APPLY TO SKIN LESIONS THREE TIMES DAILY
     Route: 061
  12. IBUPROFEN [Concomitant]
     Dosage: 800 MG, TID
  13. AMITRIPTYLINE [Concomitant]
     Dosage: 10 MG; 25 MG; TAKE 1 10 MG TABLET AT BEDTIME, INCREASE BY ? TABLET AS DIRECTED TO TOTAL 25 MG
  14. VICODIN [Concomitant]
  15. DILAUDID [Concomitant]
  16. PHENERGAN [Concomitant]

REACTIONS (1)
  - Deep vein thrombosis [Recovered/Resolved]
